FAERS Safety Report 20267066 (Version 1)
Quarter: 2021Q4

REPORT INFORMATION
  Report Type: Spontaneous
  Country: US (occurrence: US)
  Receive Date: 20211231
  Receipt Date: 20211231
  Transmission Date: 20220303
  Serious: No
  Sender: FDA-Public Use
  Company Number: US-009507513-2112USA003463

PATIENT

DRUGS (1)
  1. KEYTRUDA [Suspect]
     Active Substance: PEMBROLIZUMAB
     Dosage: UNK
     Dates: end: 2021

REACTIONS (3)
  - Postoperative wound complication [Unknown]
  - Impaired healing [Unknown]
  - Surgery [Unknown]

NARRATIVE: CASE EVENT DATE: 20210101
